FAERS Safety Report 7226721-3 (Version None)
Quarter: 2011Q1

REPORT INFORMATION
  Report Type: 
  Country: None (occurrence: None)
  Receive Date: 20110110
  Receipt Date: 20110110
  Transmission Date: 20110831
  Serious: Yes (Hospitalization)
  Sender: FDA-Public Use
  Company Number: None

PATIENT
  Sex: Female
  Weight: 74 kg

DRUGS (3)
  1. ELOXATIN [Suspect]
     Dosage: 115 MG
     Dates: end: 20101227
  2. FLUOROURACIL [Suspect]
     Dosage: 3954 MG
     Dates: end: 20101227
  3. BEVACIZUMAB (RHUMAB VEGF) [Suspect]
     Dosage: 400 MG
     Dates: end: 20101227

REACTIONS (5)
  - DIZZINESS [None]
  - CONTUSION [None]
  - FALL [None]
  - BALANCE DISORDER [None]
  - NEUROPATHY PERIPHERAL [None]
